FAERS Safety Report 6612169-9 (Version None)
Quarter: 2010Q1

REPORT INFORMATION
  Report Type: 
  Country: None (occurrence: None)
  Receive Date: 20100303
  Receipt Date: 20100115
  Transmission Date: 20100710
  Serious: Yes (Hospitalization)
  Sender: FDA-Public Use
  Company Number: AU-SANOFI-AVENTIS-F01200800807

PATIENT
  Age: 66 Year
  Sex: Male
  Weight: 83 kg

DRUGS (8)
  1. CLOPIDOGREL BISULFATE [Suspect]
     Indication: PERCUTANEOUS CORONARY INTERVENTION
     Dosage: DOSE TEXT: 4 CAPSULES PRE-PROCEDURE AND 4 CAPSULES POST-PROCEDURE
     Route: 048
     Dates: start: 20080430, end: 20080430
  2. ANTITHROMBOTIC AGENTS [Suspect]
     Indication: PERCUTANEOUS CORONARY INTERVENTION
     Route: 040
     Dates: start: 20080430, end: 20080430
  3. ANTITHROMBOTIC AGENTS [Suspect]
     Route: 042
     Dates: start: 20080430, end: 20080430
  4. HEPARIN [Concomitant]
     Route: 065
  5. ROSUVASTATIN [Concomitant]
     Route: 065
     Dates: start: 20080429
  6. VERAPAMIL [Concomitant]
     Route: 065
     Dates: start: 20080429, end: 20080503
  7. ASPIRIN [Concomitant]
     Route: 065
     Dates: start: 20080429
  8. CLOPIDOGREL [Concomitant]
     Route: 065
     Dates: start: 20080501

REACTIONS (1)
  - PULMONARY EMBOLISM [None]
